FAERS Safety Report 11335204 (Version 1)
Quarter: 2015Q3

REPORT INFORMATION
  Report Type: Spontaneous
  Country: US (occurrence: None)
  Receive Date: 20150731
  Receipt Date: 20150731
  Transmission Date: 20151125
  Serious: Yes (Hospitalization)
  Sender: FDA-Public Use
  Company Number: None

PATIENT
  Age: 51 Year
  Sex: Male

DRUGS (10)
  1. GENTAMYCIN [Suspect]
     Active Substance: GENTAMICIN
     Indication: PROPHYLAXIS
     Route: 042
     Dates: end: 20141217
  2. INSULIN ASPART [Concomitant]
     Active Substance: INSULIN ASPART
  3. FAMOTIDINE. [Concomitant]
     Active Substance: FAMOTIDINE
  4. FENTANYL. [Concomitant]
     Active Substance: FENTANYL
  5. LEVOTHYROXINE. [Concomitant]
     Active Substance: LEVOTHYROXINE
  6. PROMETHAZINE [Concomitant]
     Active Substance: PROMETHAZINE\PROMETHAZINE HYDROCHLORIDE
  7. FUROSEMIDE. [Concomitant]
     Active Substance: FUROSEMIDE
  8. METOPROLOL [Concomitant]
     Active Substance: METOPROLOL
  9. VANCOMYCIN [Suspect]
     Active Substance: VANCOMYCIN
     Route: 042
  10. HYDROMORPHONE [Concomitant]
     Active Substance: HYDROMORPHONE

REACTIONS (4)
  - Acute kidney injury [None]
  - Hyperkalaemia [None]
  - Fluid overload [None]
  - Electrocardiogram abnormal [None]

NARRATIVE: CASE EVENT DATE: 20141217
